FAERS Safety Report 10172501 (Version 1)
Quarter: 2014Q2

REPORT INFORMATION
  Report Type: Spontaneous
  Country: US (occurrence: US)
  Receive Date: 20140515
  Receipt Date: 20140515
  Transmission Date: 20141212
  Serious: Yes (Other)
  Sender: FDA-Public Use
  Company Number: US-SA-2014SA061999

PATIENT
  Sex: Female

DRUGS (3)
  1. ALLEGRA D [Suspect]
     Indication: HYPERSENSITIVITY
     Route: 048
  2. ADIPEX [Concomitant]
     Indication: DECREASED APPETITE
  3. ADDERALL [Concomitant]
     Indication: ATTENTION DEFICIT/HYPERACTIVITY DISORDER

REACTIONS (5)
  - Dizziness [Unknown]
  - Feeling drunk [Unknown]
  - Somnolence [Unknown]
  - Confusional state [Unknown]
  - Toxicity to various agents [Unknown]
